FAERS Safety Report 17069925 (Version 2)
Quarter: 2019Q4

REPORT INFORMATION
  Report Type: Other
  Country: CA (occurrence: CA)
  Receive Date: 20191125
  Receipt Date: 20191223
  Transmission Date: 20200122
  Serious: Yes (Disabling)
  Sender: FDA-Public Use
  Company Number: CA-APOTEX-2019AP024916

PATIENT
  Age: 79 Year
  Sex: Female
  Weight: 78 kg

DRUGS (4)
  1. LIPITOR [Concomitant]
     Active Substance: ATORVASTATIN CALCIUM
     Indication: PRODUCT USED FOR UNKNOWN INDICATION
     Dosage: UNK
     Route: 065
  2. DILTIAZEM. [Concomitant]
     Active Substance: DILTIAZEM
     Indication: PRODUCT USED FOR UNKNOWN INDICATION
     Dosage: UNK
     Route: 065
  3. SERTRALINE [Suspect]
     Active Substance: SERTRALINE HYDROCHLORIDE
     Indication: DEPRESSION
     Dosage: 25 MG, UNK
     Route: 048
  4. VITAMIN B12 [Concomitant]
     Active Substance: CYANOCOBALAMIN
     Indication: PRODUCT USED FOR UNKNOWN INDICATION
     Dosage: UNK
     Route: 065

REACTIONS (5)
  - Product substitution issue [Recovered/Resolved]
  - Anxiety [Recovered/Resolved]
  - Depression [Recovered/Resolved]
  - Drug ineffective [Recovered/Resolved]
  - Agitation [Recovered/Resolved]
